FAERS Safety Report 5251096-9 (Version None)
Quarter: 2007Q1

REPORT INFORMATION
  Report Type: 
  Country: None (occurrence: None)
  Receive Date: 20070228
  Receipt Date: 20060908
  Transmission Date: 20070707
  Serious: No
  Sender: FDA-Public Use
  Company Number: US-GLAXOSMITHKLINE-A0617984A

PATIENT
  Age: 36 Year
  Sex: Female
  Weight: 63.6 kg

DRUGS (3)
  1. LAMICTAL [Suspect]
     Dosage: 50MG PER DAY
     Route: 048
     Dates: start: 20060701
  2. DEPAKOTE [Concomitant]
     Dosage: 500MG PER DAY
     Route: 048
  3. LODINE [Concomitant]
     Dosage: 500MG PER DAY
     Route: 048

REACTIONS (1)
  - RASH [None]
